FAERS Safety Report 7746344-7 (Version None)
Quarter: 2011Q3

REPORT INFORMATION
  Report Type: 
  Country: None (occurrence: None)
  Receive Date: 20110913
  Receipt Date: 20110907
  Transmission Date: 20111222
  Serious: Yes (Hospitalization)
  Sender: FDA-Public Use
  Company Number: JP-ROCHE-801505

PATIENT
  Sex: Female
  Weight: 50 kg

DRUGS (7)
  1. RIBAVIRIN [Suspect]
     Route: 048
     Dates: start: 20110303, end: 20110817
  2. EPINAZION [Concomitant]
     Route: 048
     Dates: start: 20110420
  3. RESTAMIN [Concomitant]
     Route: 062
     Dates: start: 20110629
  4. WHITE PETROLATUM [Concomitant]
     Route: 062
     Dates: start: 20110426
  5. TMC435 [Suspect]
     Dosage: DOSAGE IS UNCERTAIN., DOSE FORM: PERORAL AGENT
     Route: 047
     Dates: start: 20110303, end: 20110526
  6. PEGINTERFERON ALFA-2A [Suspect]
     Route: 058
     Dates: start: 20110303, end: 20110810
  7. AMLODIPINE [Suspect]
     Route: 048

REACTIONS (1)
  - CEREBRAL HAEMORRHAGE [None]
